FAERS Safety Report 9336471 (Version 2)
Quarter: 2013Q3

REPORT INFORMATION
  Report Type: Spontaneous
  Country: IT (occurrence: IT)
  Receive Date: 20130607
  Receipt Date: 20130715
  Transmission Date: 20140515
  Serious: Yes (Other)
  Sender: FDA-Public Use
  Company Number: IT-ACCORD-017905

PATIENT
  Age: 100 Year
  Sex: Male
  Weight: 59 kg

DRUGS (5)
  1. GEMCITABINE [Suspect]
     Indication: BLADDER CANCER
     Dosage: RECEIVED ON DAY 1 AND DAY 8. CONCENTRATE FOR SOLUTION FOR INTRAVENOUS INFUSION.
     Route: 042
     Dates: start: 20130214
  2. ONDANSETRON [Concomitant]
     Route: 042
  3. RANIDIL [Concomitant]
     Route: 042
  4. CISPLATIN [Suspect]
     Indication: PRODUCT USED FOR UNKNOWN INDICATION
     Dosage: RECEIVED ON DAY 1
  5. SOLDESAM [Concomitant]
     Route: 042

REACTIONS (7)
  - Constipation [Recovering/Resolving]
  - Fatigue [Recovering/Resolving]
  - Hyperpyrexia [Recovering/Resolving]
  - Nausea [Recovering/Resolving]
  - Vomiting [Recovering/Resolving]
  - Dyspnoea [Recovering/Resolving]
  - Off label use [Unknown]
